FAERS Safety Report 10041244 (Version 1)
Quarter: 2014Q1

REPORT INFORMATION
  Report Type: Spontaneous
  Country: US (occurrence: US)
  Receive Date: 20140327
  Receipt Date: 20140327
  Transmission Date: 20141002
  Serious: Yes (Death)
  Sender: FDA-Public Use
  Company Number: US-ROCHE-1369991

PATIENT
  Age: 53 Year
  Sex: Male
  Weight: 68.1 kg

DRUGS (1)
  1. XELODA [Suspect]
     Indication: CARCINOID TUMOUR
     Route: 048
     Dates: start: 20131113

REACTIONS (1)
  - Death [Fatal]
